FAERS Safety Report 7076239-6 (Version None)
Quarter: 2010Q4

REPORT INFORMATION
  Report Type: 
  Country: None (occurrence: None)
  Receive Date: 20101101
  Receipt Date: 20101020
  Transmission Date: 20110411
  Serious: Yes (Hospitalization)
  Sender: FDA-Public Use
  Company Number: BR-US-EMD SERONO, INC.-7023644

PATIENT
  Sex: Female

DRUGS (2)
  1. REBIF [Suspect]
     Indication: RELAPSING-REMITTING MULTIPLE SCLEROSIS
     Route: 058
     Dates: start: 20100310
  2. PRIMIDONE [Concomitant]

REACTIONS (3)
  - GAIT DISTURBANCE [None]
  - PAIN [None]
  - THYROID FUNCTION TEST ABNORMAL [None]
